FAERS Safety Report 8760466 (Version 2)
Quarter: 2012Q4

REPORT INFORMATION
  Report Type: 
  Country: US (occurrence: US)
  Receive Date: 20120830
  Receipt Date: 20120927
  Transmission Date: 20130627
  Serious: Yes (Death)
  Sender: FDA-Public Use
  Company Number: PHEH2012US016821

PATIENT
  Age: 62 Year
  Sex: Female

DRUGS (11)
  1. GLEEVEC [Suspect]
     Dosage: 1 DF, every day
     Route: 048
  2. LEVAQUIN [Concomitant]
  3. DIFLUCAN [Concomitant]
  4. SYNTHROID [Concomitant]
  5. ACYCLOVIR [Concomitant]
  6. NYSTATIN [Concomitant]
  7. CRESTOR [Concomitant]
  8. ENOXAPARIN [Concomitant]
  9. BACTRIM [Concomitant]
  10. B COMPLEX [Concomitant]
  11. NEUPOGEN [Concomitant]

REACTIONS (1)
  - Death [Fatal]
